FAERS Safety Report 21958862 (Version 1)
Quarter: 2023Q1

REPORT INFORMATION
  Report Type: Spontaneous
  Country: US (occurrence: US)
  Receive Date: 20230206
  Receipt Date: 20230206
  Transmission Date: 20230418
  Serious: No
  Sender: FDA-Public Use
  Company Number: US-AERIE-2022-002770

PATIENT
  Age: 4 Year
  Sex: Female

DRUGS (3)
  1. RHOPRESSA [Suspect]
     Active Substance: NETARSUDIL MESYLATE
     Indication: Open angle glaucoma
     Dosage: UNK, OD
     Route: 047
  2. TIMOLOL [Concomitant]
     Active Substance: TIMOLOL
     Indication: Open angle glaucoma
     Dosage: UNK, BID, OD
     Route: 047
  3. LATANOPROST [Concomitant]
     Active Substance: LATANOPROST
     Indication: Open angle glaucoma
     Dosage: UNK, QD, OD
     Route: 047

REACTIONS (4)
  - Corneal disorder [Recovered/Resolved]
  - Conjunctival hyperaemia [Recovered/Resolved]
  - Eye discharge [Recovered/Resolved]
  - Off label use [Unknown]
